FAERS Safety Report 7142080-9 (Version None)
Quarter: 2010Q4

REPORT INFORMATION
  Report Type: 
  Country: None (occurrence: None)
  Receive Date: 20101207
  Receipt Date: 20101125
  Transmission Date: 20110411
  Serious: Yes (Hospitalization)
  Sender: FDA-Public Use
  Company Number: JP-AMGEN-JPNCT2010005057

PATIENT

DRUGS (6)
  1. PANITUMUMAB [Suspect]
     Indication: COLORECTAL CANCER METASTATIC
     Dosage: 6 MG/KG, Q2WK
     Route: 041
     Dates: start: 20100816, end: 20100927
  2. PANITUMUMAB [Suspect]
     Dosage: 6 MG/KG, Q2WK
     Dates: start: 20101025, end: 20101025
  3. OXYCONTIN [Concomitant]
     Route: 048
  4. OXYCODONE HCL [Concomitant]
     Route: 048
  5. MAGMITT [Concomitant]
     Route: 048
  6. GLUFAST [Concomitant]
     Route: 048

REACTIONS (4)
  - DECREASED APPETITE [None]
  - DERMATITIS ACNEIFORM [None]
  - DRY SKIN [None]
  - MALAISE [None]
